FAERS Safety Report 24574879 (Version 2)
Quarter: 2025Q4

REPORT INFORMATION
  Report Type: Other
  Country: US (occurrence: US)
  Receive Date: 20241104
  Receipt Date: 20251121
  Transmission Date: 20260117
  Serious: Yes (Hospitalization, Other)
  Sender: ANI
  Company Number: US-ANIPHARMA-012699

PATIENT
  Age: 48 Year
  Sex: Male

DRUGS (3)
  1. FUROSEMIDE [Suspect]
     Active Substance: FUROSEMIDE
     Indication: Generalised oedema
     Dosage: 20MG
  2. OLMESARTAN [Concomitant]
     Active Substance: OLMESARTAN
     Indication: Glomerulonephritis membranous
     Dosage: 40MG
  3. PREDNISONE [Concomitant]
     Active Substance: PREDNISONE
     Indication: Glomerulonephritis membranous
     Dosage: 10MG

REACTIONS (2)
  - Pancreatitis acute [Recovering/Resolving]
  - Organ failure [Recovering/Resolving]
